FAERS Safety Report 18937288 (Version 12)
Quarter: 2021Q3

REPORT INFORMATION
  Report Type: Report from Study
  Country: US (occurrence: US)
  Receive Date: 20210224
  Receipt Date: 20210908
  Transmission Date: 20211014
  Serious: Yes (Hospitalization)
  Sender: FDA-Public Use
  Company Number: US-SEATTLE GENETICS-2021SGN00183

PATIENT
  Age: 69 Year
  Sex: Female

DRUGS (10)
  1. TUCATINIB [Suspect]
     Active Substance: TUCATINIB
     Dosage: UNK
  2. TUCATINIB [Suspect]
     Active Substance: TUCATINIB
     Dosage: 150 MG, BID
  3. TUCATINIB [Suspect]
     Active Substance: TUCATINIB
     Dosage: UNK
  4. HERCEPTIN [Suspect]
     Active Substance: TRASTUZUMAB
     Indication: HER2 POSITIVE BREAST CANCER
     Dosage: UNK UNK, Q3WEEKS
     Route: 042
     Dates: start: 20210118
  5. TUCATINIB [Suspect]
     Active Substance: TUCATINIB
     Indication: HER2 POSITIVE BREAST CANCER
     Dosage: 200 MG, BID
     Dates: start: 20210110, end: 202108
  6. CAPECITABINE. [Suspect]
     Active Substance: CAPECITABINE
     Dosage: 500 MG, QAM (1 WEEK ON, 1 WEEK OFF)
  7. TUCATINIB [Suspect]
     Active Substance: TUCATINIB
     Dosage: UNK
  8. TUCATINIB [Suspect]
     Active Substance: TUCATINIB
     Dosage: UNK
  9. CAPECITABINE. [Suspect]
     Active Substance: CAPECITABINE
     Indication: HER2 POSITIVE BREAST CANCER
     Dosage: 1000 MG, BID; 1 WEEK ON 1 WEEK OFF
     Dates: start: 20210112
  10. CAPECITABINE. [Suspect]
     Active Substance: CAPECITABINE
     Dosage: 1000 MG, 1 WEEK ON, 1 WEEK OFF

REACTIONS (30)
  - Gastrooesophageal reflux disease [Unknown]
  - Dyspepsia [Unknown]
  - Nail bed bleeding [Unknown]
  - Weight abnormal [Unknown]
  - Abdominal pain [Unknown]
  - Fatigue [Unknown]
  - Decreased appetite [Not Recovered/Not Resolved]
  - Skin exfoliation [Unknown]
  - Nausea [Unknown]
  - Headache [Unknown]
  - Product dose omission issue [Unknown]
  - Gastritis [Unknown]
  - Abdominal discomfort [Unknown]
  - Flatulence [Unknown]
  - Skin ulcer [Unknown]
  - Weight decreased [Not Recovered/Not Resolved]
  - Nail disorder [Unknown]
  - Dry skin [Recovering/Resolving]
  - Skin abrasion [Unknown]
  - Cough [Recovering/Resolving]
  - Onychoclasis [Not Recovered/Not Resolved]
  - Retching [Not Recovered/Not Resolved]
  - White blood cell count abnormal [Unknown]
  - Adverse drug reaction [Unknown]
  - Erythema [Unknown]
  - Skin fissures [Recovering/Resolving]
  - White blood cell count decreased [Unknown]
  - Pulmonary mass [Unknown]
  - Oral pain [Unknown]
  - Diarrhoea [Recovering/Resolving]

NARRATIVE: CASE EVENT DATE: 20210602
